FAERS Safety Report 14537992 (Version 1)
Quarter: 2018Q1

REPORT INFORMATION
  Report Type: Spontaneous
  Country: US (occurrence: US)
  Receive Date: 20180216
  Receipt Date: 20180216
  Transmission Date: 20180509
  Serious: Yes (Other)
  Sender: FDA-Public Use
  Company Number: US-CIPLA LTD.-2018US04442

PATIENT

DRUGS (6)
  1. CARBOPLATIN. [Suspect]
     Active Substance: CARBOPLATIN
     Indication: OESOPHAGEAL SQUAMOUS CELL CARCINOMA
  2. RADIOTHERAPY [Suspect]
     Active Substance: RADIATION THERAPY
     Indication: EPIGLOTTIC CARCINOMA
     Dosage: UNK, OVER 7 WEEKS IN FIVE IDENTICAL DAILY FRACTIONS PER WEEK
     Route: 065
  3. CARBOPLATIN. [Suspect]
     Active Substance: CARBOPLATIN
     Indication: EPIGLOTTIC CARCINOMA
     Dosage: UNK, AUC 2, WEEKLY, CYCLICAL
     Route: 065
  4. PACLITAXEL. [Suspect]
     Active Substance: PACLITAXEL
     Indication: OESOPHAGEAL SQUAMOUS CELL CARCINOMA
  5. RADIOTHERAPY [Suspect]
     Active Substance: RADIATION THERAPY
     Indication: OESOPHAGEAL SQUAMOUS CELL CARCINOMA
  6. PACLITAXEL. [Suspect]
     Active Substance: PACLITAXEL
     Indication: EPIGLOTTIC CARCINOMA
     Dosage: 50 MG/M2, WEEKLY, CYCLICAL
     Route: 065

REACTIONS (6)
  - Dysphagia [Unknown]
  - Oesophageal stenosis [Unknown]
  - Soft tissue necrosis [Unknown]
  - Dermatitis [Unknown]
  - Dry mouth [Unknown]
  - Mucosal inflammation [Unknown]
